FAERS Safety Report 5007271-1 (Version None)
Quarter: 2006Q2

REPORT INFORMATION
  Report Type: 
  Country: None (occurrence: None)
  Receive Date: 20060518
  Receipt Date: 20060518
  Transmission Date: 20061013
  Serious: Yes (Hospitalization)
  Sender: FDA-Public Use
  Company Number: None

PATIENT
  Sex: Male

DRUGS (7)
  1. ENOXAPARIN SODIUM [Suspect]
     Indication: DRUG THERAPY
     Dosage: 80 MG BID SQ
     Route: 058
     Dates: start: 20060323, end: 20060327
  2. LORAZEPAM [Concomitant]
  3. METOPROLOL TARTRATE [Concomitant]
  4. OXYCODONE AND ACETAMINOPHEN [Concomitant]
  5. PROPAFENONE HCL [Concomitant]
  6. SIMVASTATIN [Concomitant]
  7. WARFARIN [Concomitant]

REACTIONS (3)
  - POST PROCEDURAL COMPLICATION [None]
  - POST PROCEDURAL HAEMATOMA [None]
  - VASCULAR PSEUDOANEURYSM [None]
